FAERS Safety Report 4992450-X (Version None)
Quarter: 2006Q2

REPORT INFORMATION
  Report Type: 
  Country: None (occurrence: None)
  Receive Date: 20060502
  Receipt Date: 20060420
  Transmission Date: 20061013
  Serious: Yes (Hospitalization)
  Sender: FDA-Public Use
  Company Number: HQWYE804112APR06

PATIENT
  Age: 19 Year
  Sex: Female

DRUGS (12)
  1. RAPAMUNE [Suspect]
     Indication: PROPHYLAXIS AGAINST TRANSPLANT REJECTION
     Dosage: 3 MG 2X PER 1 DAY, ORAL
     Route: 048
     Dates: start: 20041206, end: 20060418
  2. PREDNISONE TAB [Concomitant]
  3. TACROLIMUS         (TACROLIMUS) [Concomitant]
  4. CALCITRIOL           (CALCITRIOL0 [Concomitant]
  5. RANITIDINE [Concomitant]
  6. ENALAPRIL         (ENALAPARIL) [Concomitant]
  7. FOLIC ACID [Concomitant]
  8. AMLODIPINE [Concomitant]
  9. ARANESP [Concomitant]
  10. LIPITOR [Concomitant]
  11. IRON        (IRON) [Concomitant]
  12. LABETALOL HCL [Concomitant]

REACTIONS (3)
  - DEHYDRATION [None]
  - GRAFT DYSFUNCTION [None]
  - KIDNEY TRANSPLANT REJECTION [None]
